FAERS Safety Report 5506911-8 (Version None)
Quarter: 2007Q4

REPORT INFORMATION
  Report Type: 
  Country: None (occurrence: None)
  Receive Date: 20071105
  Receipt Date: 20071025
  Transmission Date: 20080405
  Serious: Yes (Hospitalization)
  Sender: FDA-Public Use
  Company Number: JP-PFIZER INC-2007091972

PATIENT
  Sex: Male

DRUGS (12)
  1. LIPITOR [Suspect]
     Indication: HYPERLIPIDAEMIA
     Route: 048
  2. WARFARIN SODIUM [Suspect]
     Indication: ATRIAL FIBRILLATION
     Route: 048
     Dates: start: 20070926, end: 20071008
  3. WARFARIN SODIUM [Suspect]
     Route: 048
     Dates: start: 20071010
  4. TENORMIN [Concomitant]
     Indication: HYPERTENSION
     Dosage: DAILY DOSE:50MG
     Route: 048
  5. VALSARTAN [Concomitant]
     Indication: HYPERTENSION
     Dosage: DAILY DOSE:80MG
     Route: 048
  6. HERBESSER R [Concomitant]
     Indication: HYPERTENSION
     Dosage: DAILY DOSE:200MG
     Route: 048
  7. DOXAZOSIN MESYLATE [Concomitant]
     Indication: HYPERTENSION
     Dosage: DAILY DOSE:2MG
     Route: 048
  8. LANSOPRAZOLE [Concomitant]
     Indication: REFLUX OESOPHAGITIS
     Dosage: DAILY DOSE:30MG
     Route: 048
  9. PHENYTOIN SODIUM CAP [Concomitant]
     Indication: EPILEPSY
     Route: 048
  10. CLARITHROMYCIN [Concomitant]
  11. TICLOPIDINE HCL [Concomitant]
     Indication: CEREBRAL INFARCTION
     Route: 048
  12. BASEN [Concomitant]
     Indication: DIABETES MELLITUS
     Route: 048
     Dates: start: 20010101

REACTIONS (1)
  - PROTHROMBIN TIME PROLONGED [None]
